FAERS Safety Report 15987774 (Version 1)
Quarter: 2019Q1

REPORT INFORMATION
  Report Type: Spontaneous
  Country: US (occurrence: US)
  Receive Date: 20190220
  Receipt Date: 20190220
  Transmission Date: 20190418
  Serious: No
  Sender: FDA-Public Use
  Company Number: US-PFIZER INC-2019066322

PATIENT
  Age: 35 Year
  Sex: Female

DRUGS (1)
  1. PREMARIN [Suspect]
     Active Substance: ESTROGENS, CONJUGATED
     Indication: HYSTERECTOMY
     Dosage: UNK

REACTIONS (4)
  - Hot flush [Recovered/Resolved]
  - Product use in unapproved indication [Unknown]
  - Product dose omission [Unknown]
  - Drug ineffective [Recovered/Resolved]
